FAERS Safety Report 5865262-2 (Version None)
Quarter: 2008Q3

REPORT INFORMATION
  Report Type: 
  Country: None (occurrence: None)
  Receive Date: 20080829
  Receipt Date: 20070815
  Transmission Date: 20090109
  Serious: No
  Sender: FDA-Public Use
  Company Number: A0661916A

PATIENT
  Age: 48 Year
  Sex: Female

DRUGS (2)
  1. BECONASE [Suspect]
     Dosage: 2SPR TWICE PER DAY
     Route: 045
  2. PAIN MEDICATION [Concomitant]

REACTIONS (4)
  - DRUG INEFFECTIVE [None]
  - HYPERSENSITIVITY [None]
  - PHARMACEUTICAL PRODUCT COMPLAINT [None]
  - SINUS HEADACHE [None]
